FAERS Safety Report 4445275-8 (Version None)
Quarter: 2004Q3

REPORT INFORMATION
  Report Type: 
  Country: None (occurrence: None)
  Receive Date: 20040823
  Receipt Date: 20040319
  Transmission Date: 20050211
  Serious: Yes (Hospitalization)
  Sender: FDA-Public Use
  Company Number: CIP04000585

PATIENT
  Age: 75 Year
  Sex: Female

DRUGS (2)
  1. ASACOL [Suspect]
     Indication: CROHN'S DISEASE
     Dosage: 400 MG, ORAL
     Route: 048
     Dates: start: 20040201, end: 20040301
  2. PREDNISONE [Concomitant]

REACTIONS (2)
  - HYPERSENSITIVITY [None]
  - PYREXIA [None]
